FAERS Safety Report 10249970 (Version 2)
Quarter: 2014Q2

REPORT INFORMATION
  Report Type: Spontaneous
  Country: AR (occurrence: AR)
  Receive Date: 20140620
  Receipt Date: 20140620
  Transmission Date: 20141212
  Serious: Yes (Death, Other)
  Sender: FDA-Public Use
  Company Number: AR-ASTRAZENECA-2014SE35893

PATIENT
  Age: 80 Year
  Sex: Female

DRUGS (10)
  1. BRILINTA [Suspect]
     Indication: ANTIPLATELET THERAPY
     Route: 048
  2. ROSUVASTATIN [Concomitant]
  3. ENOXAPARIN [Concomitant]
     Route: 058
  4. BISOPROLOL [Concomitant]
  5. ENALAPRIL [Concomitant]
  6. ASPIRIN [Concomitant]
  7. HALOPERIDOL [Concomitant]
  8. PROTAMIN [Concomitant]
     Dosage: 1 AMPOULE
     Route: 042
  9. PROTROMPLEX [Concomitant]
     Dosage: 7 FLASKS
  10. VITAMIN K [Concomitant]
     Dosage: 1 AMPOULE
     Route: 042

REACTIONS (3)
  - Cerebral haemorrhage [Fatal]
  - Cardio-respiratory arrest [Fatal]
  - Bradycardia [Unknown]
